FAERS Safety Report 8022656-7 (Version None)
Quarter: 2012Q1

REPORT INFORMATION
  Report Type: 
  Country: None (occurrence: None)
  Receive Date: 20120104
  Receipt Date: 20120103
  Transmission Date: 20120608
  Serious: Yes (Hospitalization, Other)
  Sender: FDA-Public Use
  Company Number: RO-ROCHE-1026924

PATIENT
  Sex: Male

DRUGS (2)
  1. PEGINTERFERON ALFA-2A [Suspect]
     Indication: HEPATITIS C
     Dosage: INTERRUPTED FOR ONE WEEK
     Route: 058
     Dates: start: 20110920, end: 20111213
  2. COPEGUS [Concomitant]
     Indication: HEPATITIS C
     Dosage: INTERRUPTED FOR ONE WEEK
     Route: 048
     Dates: start: 20110920

REACTIONS (1)
  - DIABETIC COMA [None]
